FAERS Safety Report 8987990 (Version 2)
Quarter: 2013Q2

REPORT INFORMATION
  Report Type: Report from Study
  Country: US (occurrence: US)
  Receive Date: 20121227
  Receipt Date: 20130426
  Transmission Date: 20140414
  Serious: Yes (Death, Hospitalization)
  Sender: FDA-Public Use
  Company Number: US-ROCHE-1172792

PATIENT
  Age: 63 Year
  Sex: Female

DRUGS (1)
  1. AVASTIN [Suspect]
     Indication: NON-SMALL CELL LUNG CANCER
     Route: 042
     Dates: start: 201212

REACTIONS (2)
  - Blood count abnormal [Unknown]
  - Death [Fatal]
